FAERS Safety Report 9366014 (Version 2)
Quarter: 2013Q4

REPORT INFORMATION
  Report Type: Spontaneous
  Country: FR (occurrence: FR)
  Receive Date: 20130625
  Receipt Date: 20131020
  Transmission Date: 20140711
  Serious: Yes (Other)
  Sender: FDA-Public Use
  Company Number: FR-TEVA-414084ISR

PATIENT
  Age: 45 Year
  Sex: Female

DRUGS (1)
  1. COPAXONE [Suspect]
     Indication: MULTIPLE SCLEROSIS
     Dosage: 1 DOSAGE FORMS DAILY; AUTOJECT DEPTH: 8-10 MM
     Route: 058
     Dates: start: 20130530

REACTIONS (16)
  - Lung disorder [Unknown]
  - Febrile convulsion [Unknown]
  - Pain in extremity [Unknown]
  - Vomiting [Recovered/Resolved]
  - Nausea [Recovered/Resolved]
  - Fatigue [Unknown]
  - Influenza like illness [Unknown]
  - Injection site warmth [Recovered/Resolved]
  - Injection site erythema [Recovered/Resolved]
  - Injection site induration [Recovered/Resolved]
  - Hot flush [Recovered/Resolved]
  - Arthralgia [Unknown]
  - Pyrexia [Recovered/Resolved]
  - Lung disorder [Unknown]
  - Pyrexia [Recovered/Resolved]
  - Pain [Recovered/Resolved]
